FAERS Safety Report 9640299 (Version 1)
Quarter: 2013Q4

REPORT INFORMATION
  Report Type: Spontaneous
  Country: US (occurrence: US)
  Receive Date: 20131023
  Receipt Date: 20131023
  Transmission Date: 20140711
  Serious: No
  Sender: FDA-Public Use
  Company Number: US-009507513-1310USA004673

PATIENT
  Sex: Female

DRUGS (1)
  1. NASONEX [Suspect]
     Indication: SEASONAL ALLERGY
     Dosage: 1 SPRAY, QD
     Route: 055
     Dates: start: 2012

REACTIONS (3)
  - Hypersensitivity [Not Recovered/Not Resolved]
  - Product quality issue [Not Recovered/Not Resolved]
  - Drug dose omission [Not Recovered/Not Resolved]
